FAERS Safety Report 4990419-2 (Version None)
Quarter: 2006Q2

REPORT INFORMATION
  Report Type: 
  Country: None (occurrence: None)
  Receive Date: 20060501
  Receipt Date: 20060501
  Transmission Date: 20061013
  Serious: Yes (Life-Threatening, Hospitalization)
  Sender: FDA-Public Use
  Company Number: None

PATIENT
  Age: 63 Year
  Sex: Male
  Weight: 135.9 kg

DRUGS (2)
  1. DOXYCYCLINE [Suspect]
     Indication: COUGH
     Dosage: 100MG  P.O.  BID
     Route: 048
     Dates: start: 20060413, end: 20060419
  2. OMEPRAZOLE [Concomitant]

REACTIONS (1)
  - HEPATIC ENZYME ABNORMAL [None]
